FAERS Safety Report 7730999-7 (Version None)
Quarter: 2011Q3

REPORT INFORMATION
  Report Type: 
  Country: None (occurrence: None)
  Receive Date: 20110906
  Receipt Date: 20110830
  Transmission Date: 20111222
  Serious: Yes (Hospitalization, Other)
  Sender: FDA-Public Use
  Company Number: DE-AMGEN-DEUCT2011042851

PATIENT
  Age: 72 Year
  Sex: Male
  Weight: 65 kg

DRUGS (30)
  1. PANITUMUMAB [Suspect]
     Indication: COLORECTAL CANCER METASTATIC
     Dosage: 360 MG, UNK
  2. OXALIPLATIN [Concomitant]
     Indication: COLORECTAL CANCER METASTATIC
     Dosage: 110 UNK, UNK
     Dates: start: 20110621
  3. DEXAMETHASONE [Concomitant]
     Indication: NAUSEA
     Dosage: UNK MG, UNK
     Route: 042
     Dates: start: 20110622
  4. DEXAMETHASONE [Concomitant]
     Route: 048
     Dates: start: 20110622
  5. ALLOPURINOL [Concomitant]
     Indication: GOUT
     Dosage: 150 MG, UNK
     Route: 048
     Dates: start: 19890615
  6. TEPILTA [Concomitant]
     Indication: ABDOMINAL PAIN UPPER
     Dosage: 1 UNK, UNK
     Route: 048
     Dates: start: 20110706
  7. NOVALGIN [Concomitant]
     Indication: PYREXIA
  8. IMODIUM [Concomitant]
     Indication: DIARRHOEA
     Dosage: 1 UNK, UNK
     Route: 048
     Dates: start: 20110707, end: 20110707
  9. HYDROCHLORTHIAZID [Concomitant]
     Indication: HYPERKALAEMIA
     Dosage: 12.5 MG, UNK
     Route: 048
     Dates: start: 20110515
  10. OLICLINOMEL [Concomitant]
     Indication: WEIGHT DECREASED
     Dosage: UNK UNK, UNK
     Route: 042
     Dates: start: 20110713, end: 20110719
  11. SODIUM CHLORIDE [Concomitant]
     Indication: RENAL FAILURE
     Dosage: 1000 ML, UNK
     Route: 042
     Dates: start: 20110705, end: 20110823
  12. VALSARTAN [Concomitant]
     Indication: HYPERTENSION
     Dosage: 160 MG, UNK
     Route: 048
     Dates: start: 20110615
  13. LEUCOVORIN CALCIUM [Concomitant]
     Indication: COLORECTAL CANCER METASTATIC
     Dosage: 110 UNK, UNK
     Dates: start: 20110621
  14. TORSEMIDE [Concomitant]
     Indication: RENAL FAILURE
     Dosage: 5 MG, UNK
     Route: 048
     Dates: start: 20110709, end: 20110709
  15. VITAMIN B 12 LICHTENSTEIN [Concomitant]
     Indication: POLYNEUROPATHY
     Dosage: 1 UNK, UNK
     Route: 042
     Dates: start: 20110621
  16. SALVIATHYMOL [Concomitant]
     Indication: STOMATITIS
     Dosage: 10 ML, UNK
     Route: 050
     Dates: start: 20110621
  17. FLUOROURACIL [Concomitant]
     Indication: COLORECTAL CANCER METASTATIC
     Dosage: 110 UNK, UNK
     Dates: start: 20110621
  18. OXAZEPAM [Concomitant]
     Indication: INSOMNIA
     Dosage: 1 UNK, UNK
     Route: 048
     Dates: start: 20110718, end: 20110718
  19. DOXYCYCLINE [Concomitant]
     Indication: RASH
     Dosage: 100 MG, UNK
     Route: 048
     Dates: start: 20110621
  20. KEVATRIL [Concomitant]
     Indication: NAUSEA
     Dosage: UNK UNK, UNK
     Route: 042
     Dates: start: 20110621
  21. AMINO ACID INJ [Concomitant]
     Indication: WEIGHT DECREASED
     Dosage: 1 UNK, UNK
     Route: 042
     Dates: start: 20110706, end: 20110713
  22. PIPERACILLIN AND TAZOBACTAM [Concomitant]
     Indication: UROSEPSIS
     Dosage: 1 UNK, UNK
     Route: 042
     Dates: start: 20110711, end: 20110717
  23. CPS [Concomitant]
     Indication: MUCOSAL INFLAMMATION
     Dosage: 15 G, UNK
     Route: 048
     Dates: start: 20110705, end: 20110705
  24. ENOXAPARIN SODIUM [Concomitant]
     Indication: THROMBOSIS
     Dosage: 0.4 ML, UNK
     Route: 058
     Dates: start: 20110727
  25. MUCOFALK [Concomitant]
     Indication: CONSTIPATION
     Dosage: 5 G, UNK
     Route: 048
     Dates: start: 20110706, end: 20110714
  26. DIPIDOLOR [Concomitant]
     Indication: PYREXIA
     Dosage: UNK UNK, UNK
     Route: 042
     Dates: start: 20110711, end: 20110711
  27. NEUPOGEN [Concomitant]
     Indication: LEUKOPENIA
     Dosage: 300 MUG, UNK
     Route: 058
     Dates: start: 20110705, end: 20110708
  28. INSULIN GLARGINE [Concomitant]
     Indication: DIABETES MELLITUS
     Dosage: 100 UNK, UNK
     Route: 058
     Dates: start: 19890615
  29. NOVALGIN [Concomitant]
     Indication: BACK PAIN
     Dosage: UNK GTT, UNK
     Route: 048
     Dates: start: 20110705, end: 20110711
  30. FERROUS SULFATE TAB [Concomitant]
     Indication: ANAEMIA
     Dosage: 40 MG, UNK
     Route: 048
     Dates: start: 20110718

REACTIONS (1)
  - LEUKOPENIA [None]
